FAERS Safety Report 14662468 (Version 13)
Quarter: 2022Q3

REPORT INFORMATION
  Report Type: Report from Study
  Country: JP (occurrence: None)
  Receive Date: 20180321
  Receipt Date: 20220708
  Transmission Date: 20221027
  Serious: Yes (Hospitalization)
  Sender: FDA-Public Use
  Company Number: JP-ROCHE-2080310

PATIENT
  Age: 56 Year
  Sex: Female
  Weight: 44.3 kg

DRUGS (70)
  1. ATEZOLIZUMAB [Suspect]
     Active Substance: ATEZOLIZUMAB
     Indication: Ovarian cancer
     Dosage: DATE OF MOST RECENT DOSE OF BLINDED ATEZOLIZUMAB PRIOR TO SAE ONSET 06/FEB/2018
     Route: 042
     Dates: start: 20171222, end: 20180426
  2. BEVACIZUMAB [Suspect]
     Active Substance: BEVACIZUMAB
     Indication: Ovarian cancer
     Dosage: DATE OF MOST RECENT DOSE 654 MG OF BEVACIZUMAB PRIOR TO AE ONSET 16/JAN/2018
     Route: 042
     Dates: start: 20171222, end: 20180426
  3. PACLITAXEL [Suspect]
     Active Substance: PACLITAXEL
     Indication: Ovarian cancer
     Dosage: DATE OF MOST RECENT DOSE 246 MG OF PACLITAXEL PRIOR TO AE ONSET: 06/FEB/2018
     Route: 042
     Dates: start: 20171222, end: 20180426
  4. PACLITAXEL [Suspect]
     Active Substance: PACLITAXEL
     Route: 042
     Dates: start: 20180710, end: 20181023
  5. CARBOPLATIN [Suspect]
     Active Substance: CARBOPLATIN
     Indication: Ovarian cancer
     Dosage: ACHIEVE A TARGET AREA UNDER THE CURVE (AUC) OF 6 MILLIGRAMS PER MILLILITER MINUTE (MG/ML MIN) ON DAY
     Route: 042
     Dates: start: 20171222, end: 20180426
  6. CARBOPLATIN [Suspect]
     Active Substance: CARBOPLATIN
     Route: 042
     Dates: start: 20180710
  7. TRAMCET [Concomitant]
     Active Substance: ACETAMINOPHEN\TRAMADOL
     Indication: Cancer pain
     Dates: end: 20180209
  8. VONOPRAZAN FUMARATE [Concomitant]
     Active Substance: VONOPRAZAN FUMARATE
     Indication: Gastritis prophylaxis
     Dates: end: 20180314
  9. LOXOPROFEN [Concomitant]
     Active Substance: LOXOPROFEN
     Indication: Arthralgia
     Dates: start: 20171223, end: 20180220
  10. DOMPERIDONE [Concomitant]
     Active Substance: DOMPERIDONE
     Indication: Nausea
     Dates: start: 20171223, end: 20180220
  11. MIYA-BM [Concomitant]
     Active Substance: CLOSTRIDIUM BUTYRICUM SPORES STRAIN M-55
     Indication: Diarrhoea
     Dates: start: 20180102
  12. DESYREL [Concomitant]
     Active Substance: TRAZODONE HYDROCHLORIDE
     Indication: Insomnia
     Dates: start: 20180111, end: 20180123
  13. MAGNESIUM OXIDE [Concomitant]
     Active Substance: MAGNESIUM OXIDE
     Dates: start: 20180112, end: 20180405
  14. ALOSENN [Concomitant]
     Indication: Constipation prophylaxis
     Dates: start: 20180119
  15. FAMOTIDINE [Concomitant]
     Active Substance: FAMOTIDINE
     Indication: Abdominal pain upper
     Dates: start: 20180120, end: 20180122
  16. FAMOTIDINE [Concomitant]
     Active Substance: FAMOTIDINE
     Dates: start: 20180317, end: 20180326
  17. ACETAMINOPHEN [Concomitant]
     Active Substance: ACETAMINOPHEN
     Indication: Abdominal pain
     Route: 042
     Dates: start: 20180120, end: 20180122
  18. ACETAMINOPHEN [Concomitant]
     Active Substance: ACETAMINOPHEN
     Indication: Wound complication
     Dates: start: 20180317, end: 20180327
  19. ACETAMINOPHEN [Concomitant]
     Active Substance: ACETAMINOPHEN
     Indication: Anaesthesia
     Dates: start: 20180316, end: 20180316
  20. TRAMADOL [Concomitant]
     Active Substance: TRAMADOL
     Indication: Abdominal pain
     Dates: start: 20180120, end: 20180122
  21. CALCIUM CHLORIDE ANHYDROUS\POTASSIUM CHLORIDE\SODIUM CHLORIDE\SODIUM L [Concomitant]
     Active Substance: CALCIUM CHLORIDE ANHYDROUS\POTASSIUM CHLORIDE\SODIUM CHLORIDE\SODIUM LACTATE
     Dates: start: 20180120, end: 20180125
  22. CALCIUM CHLORIDE ANHYDROUS\POTASSIUM CHLORIDE\SODIUM CHLORIDE\SODIUM L [Concomitant]
     Active Substance: CALCIUM CHLORIDE ANHYDROUS\POTASSIUM CHLORIDE\SODIUM CHLORIDE\SODIUM LACTATE
     Dates: start: 20180223, end: 20180315
  23. CALCIUM CHLORIDE ANHYDROUS\POTASSIUM CHLORIDE\SODIUM CHLORIDE\SODIUM L [Concomitant]
     Active Substance: CALCIUM CHLORIDE ANHYDROUS\POTASSIUM CHLORIDE\SODIUM CHLORIDE\SODIUM LACTATE
     Dates: start: 20180317, end: 20180319
  24. CEFMETAZOLE [Concomitant]
     Active Substance: CEFMETAZOLE
     Indication: Infection prophylaxis
     Dates: start: 20180120, end: 20180122
  25. CEFMETAZOLE [Concomitant]
     Active Substance: CEFMETAZOLE
     Dates: start: 20180316, end: 20180316
  26. ALLOID G [Concomitant]
     Active Substance: SODIUM ALGINATE
     Indication: Abdominal pain upper
     Route: 048
     Dates: start: 20180117
  27. VITAMEDIN (JAPAN) [Concomitant]
     Indication: Vitamin supplementation
     Route: 042
     Dates: start: 20180201, end: 20180208
  28. TEPRENONE [Concomitant]
     Active Substance: TEPRENONE
     Indication: Abdominal pain upper
     Dates: start: 20180204, end: 20180205
  29. FLUNITRAZEPAM [Concomitant]
     Active Substance: FLUNITRAZEPAM
     Indication: Insomnia
     Dates: start: 20180224, end: 20180320
  30. HEPARINOID [Concomitant]
     Indication: Dry skin
     Route: 061
     Dates: start: 20180307, end: 20180315
  31. FAMOTIDINE [Concomitant]
     Active Substance: FAMOTIDINE
     Indication: Abdominal pain upper
     Dates: start: 20180312, end: 20180315
  32. FAMOTIDINE [Concomitant]
     Active Substance: FAMOTIDINE
     Dates: start: 20180327, end: 20180423
  33. DEXTROSE [Concomitant]
     Active Substance: DEXTROSE
     Dates: start: 20180316, end: 20180317
  34. PRIMPERAN [Concomitant]
     Active Substance: METOCLOPRAMIDE HYDROCHLORIDE
     Dates: start: 20180317, end: 20180402
  35. ENOXAPARIN SODIUM [Concomitant]
     Active Substance: ENOXAPARIN SODIUM
     Dates: start: 20180317, end: 20180324
  36. FLURBIPROFEN AXETIL [Concomitant]
     Active Substance: FLURBIPROFEN AXETIL
     Indication: Wound complication
     Route: 042
     Dates: start: 20180317, end: 20180317
  37. ALBUMINAR [Concomitant]
     Active Substance: ALBUMIN HUMAN
     Dates: start: 20180317, end: 20180319
  38. LEVOFLOXACIN [Concomitant]
     Active Substance: LEVOFLOXACIN
     Indication: Cystitis
     Dates: start: 20180326, end: 20180401
  39. SODIUM FERROUS CITRATE [Concomitant]
     Active Substance: SODIUM FERROUS CITRATE
     Indication: Anaemia
     Dates: start: 20180327, end: 20180411
  40. XYLOCAINE [Concomitant]
     Active Substance: LIDOCAINE HYDROCHLORIDE
     Dates: start: 20180320
  41. SUPRANE [Concomitant]
     Active Substance: DESFLURANE
     Indication: Anaesthesia
     Dates: start: 20180316, end: 20180316
  42. ROCURONIUM BROMIDE [Concomitant]
     Active Substance: ROCURONIUM BROMIDE
     Indication: Anaesthesia
     Route: 042
     Dates: start: 20180316, end: 20180316
  43. ULTIVA [Concomitant]
     Active Substance: REMIFENTANIL HYDROCHLORIDE
     Indication: Anaesthesia
     Route: 042
     Dates: start: 20180316, end: 20180316
  44. FENTANYL [Concomitant]
     Active Substance: FENTANYL
     Indication: Anaesthesia
     Dates: start: 20180316, end: 20180319
  45. LEVOBUPIVACAINE HYDROCHLORIDE [Concomitant]
     Active Substance: LEVOBUPIVACAINE HYDROCHLORIDE
     Indication: Anaesthesia
     Dates: start: 20180316, end: 20180319
  46. PROPOFOL [Concomitant]
     Active Substance: PROPOFOL
     Indication: Anaesthesia
     Dates: start: 20180316, end: 20180316
  47. DROPERIDOL [Concomitant]
     Active Substance: DROPERIDOL
     Indication: Anaesthesia
     Dates: start: 20180316, end: 20180319
  48. DROPERIDOL [Concomitant]
     Active Substance: DROPERIDOL
     Dates: start: 20180316, end: 20180316
  49. BRIDION [Concomitant]
     Active Substance: SUGAMMADEX
     Dates: start: 20180316, end: 20180316
  50. EPHEDRINE HYDROCHLORIDE [Concomitant]
     Active Substance: EPHEDRINE HYDROCHLORIDE
     Indication: Anaesthesia
     Dates: start: 20180316, end: 20180316
  51. DOPAMINE [Concomitant]
     Active Substance: DOPAMINE HYDROCHLORIDE
     Dates: start: 20180316, end: 20180316
  52. INDIGO CARMINE [Concomitant]
     Active Substance: INDIGOTINDISULFONATE SODIUM
     Dates: start: 20180316, end: 20180316
  53. DEXAMETHASONE SODIUM PHOSPHATE [Concomitant]
     Active Substance: DEXAMETHASONE SODIUM PHOSPHATE
     Route: 048
     Dates: start: 20180316, end: 20180316
  54. AMINO ACIDS, SOURCE UNSPECIFIED [Concomitant]
     Active Substance: AMINO ACIDS, SOURCE UNSPECIFIED
     Dates: start: 20180316, end: 20180316
  55. VOLUVEN [Concomitant]
     Active Substance: HYDROXYETHYL STARCH 130/0.4
     Dates: start: 20180316, end: 20180316
  56. KENKETSU ALBUMIN [Concomitant]
     Dates: start: 20180316, end: 20180317
  57. HUMAN RED BLOOD CELL [Concomitant]
     Active Substance: HUMAN RED BLOOD CELL
     Indication: Anaemia
     Dates: start: 20180316, end: 20180316
  58. GLYCERIN [Concomitant]
     Active Substance: GLYCERIN
     Dates: start: 20180315, end: 20180315
  59. MAGNESIUM CITRATE [Concomitant]
     Active Substance: MAGNESIUM CITRATE
     Dates: start: 20180315, end: 20180315
  60. FESIN [Concomitant]
     Indication: Anaemia
     Dates: start: 20180317, end: 20180326
  61. VONOPRAZAN FUMARATE [Concomitant]
     Active Substance: VONOPRAZAN FUMARATE
     Dates: start: 20180423
  62. CALCIUM CHLORIDE\POTASSIUM CHLORIDE\SODIUM CHLORIDE\SODIUM LACTATE\SOR [Concomitant]
     Active Substance: CALCIUM CHLORIDE\POTASSIUM CHLORIDE\SODIUM CHLORIDE\SODIUM LACTATE\SORBITOL
     Dates: start: 20180424
  63. PRIMPERAN [Concomitant]
     Active Substance: METOCLOPRAMIDE HYDROCHLORIDE
     Indication: Nausea
     Dates: start: 20180424, end: 20180424
  64. BROMAZEPAM [Concomitant]
     Active Substance: BROMAZEPAM
     Indication: Nausea
     Dates: start: 20180424, end: 20180424
  65. POLARAMINE [Concomitant]
     Active Substance: DEXCHLORPHENIRAMINE MALEATE
     Dates: start: 20180206, end: 20180206
  66. RANITIDINE [Concomitant]
     Active Substance: RANITIDINE
     Dates: start: 20180206, end: 20180206
  67. DEXAMETHASONE SODIUM PHOSPHATE [Concomitant]
     Active Substance: DEXAMETHASONE SODIUM PHOSPHATE
     Route: 042
     Dates: start: 20180206, end: 20180206
  68. ALOXI [Concomitant]
     Active Substance: PALONOSETRON HYDROCHLORIDE
     Dosage: V INFECTION
     Dates: start: 20180206, end: 20180206
  69. QUETIAPINE [Concomitant]
     Active Substance: QUETIAPINE
     Indication: Insomnia
     Dates: start: 20180115
  70. PANTOL (JAPAN) [Concomitant]
     Dates: start: 20180317, end: 20180402

REACTIONS (1)
  - Pneumatosis intestinalis [Recovered/Resolved]

NARRATIVE: CASE EVENT DATE: 20180220
